FAERS Safety Report 16793286 (Version 1)
Quarter: 2019Q3

REPORT INFORMATION
  Report Type: Spontaneous
  Country: US (occurrence: US)
  Receive Date: 20190911
  Receipt Date: 20190911
  Transmission Date: 20191005
  Serious: Yes (Hospitalization, Other)
  Sender: FDA-Public Use
  Company Number: US-HIKMA PHARMACEUTICALS USA INC.-US-H14001-19-04827

PATIENT
  Age: 55 Year
  Sex: Female
  Weight: 50.85 kg

DRUGS (1)
  1. IRINOTECAN [Suspect]
     Active Substance: IRINOTECAN
     Indication: ADENOCARCINOMA
     Route: 041
     Dates: start: 20190826, end: 20190826

REACTIONS (6)
  - Throat tightness [Recovering/Resolving]
  - Gingival swelling [Recovering/Resolving]
  - Muscular weakness [Not Recovered/Not Resolved]
  - Tongue disorder [Unknown]
  - Muscle spasms [Not Recovered/Not Resolved]
  - Dyspnoea [Not Recovered/Not Resolved]

NARRATIVE: CASE EVENT DATE: 20190826
